FAERS Safety Report 18986485 (Version 3)
Quarter: 2021Q2

REPORT INFORMATION
  Report Type: Spontaneous
  Country: US (occurrence: US)
  Receive Date: 20210309
  Receipt Date: 20210408
  Transmission Date: 20210717
  Serious: No
  Sender: FDA-Public Use
  Company Number: US-BIOVITRUM-2021US2321

PATIENT
  Age: 8 Month
  Sex: Female
  Weight: 7.12 kg

DRUGS (8)
  1. ENALAPRIL MALEATE. [Concomitant]
     Active Substance: ENALAPRIL MALEATE
  2. VITAMIN D3 [Concomitant]
     Active Substance: CHOLECALCIFEROL
     Dosage: 10(400)/ML DROPS
  3. CUVPOSA [Concomitant]
     Active Substance: GLYCOPYRROLATE
     Dosage: 1 MG/5 ML SOLUTION
  4. LASIX [Concomitant]
     Active Substance: FUROSEMIDE
  5. IPRATROPIUM BROMIDE. [Concomitant]
     Active Substance: IPRATROPIUM BROMIDE
  6. SYNAGIS [Suspect]
     Active Substance: PALIVIZUMAB
     Indication: HYPOPLASTIC LEFT HEART SYNDROME
     Dosage: 100MG/1ML VL LIQUID
     Route: 030
     Dates: start: 20210208
  7. PEPCID AC [Concomitant]
     Active Substance: FAMOTIDINE
  8. OMEPRAZOLE. [Concomitant]
     Active Substance: OMEPRAZOLE
     Dosage: DR

REACTIONS (2)
  - Injection site swelling [Unknown]
  - Injection site mass [Unknown]

NARRATIVE: CASE EVENT DATE: 20210208
